FAERS Safety Report 4297960-9 (Version None)
Quarter: 2004Q1

REPORT INFORMATION
  Report Type: 
  Country: None (occurrence: None)
  Receive Date: 20040218
  Receipt Date: 20001222
  Transmission Date: 20041129
  Serious: Yes (Other)
  Sender: FDA-Public Use
  Company Number: US-BRISTOL-MYERS SQUIBB COMPANY-10659910

PATIENT
  Sex: Female

DRUGS (13)
  1. STADOL [Suspect]
     Indication: MIGRAINE
     Route: 045
     Dates: end: 19980101
  2. PROZAC [Concomitant]
  3. DARVON [Concomitant]
  4. FLEXERIL [Concomitant]
  5. SKELAXIN [Concomitant]
  6. LORCET-HD [Concomitant]
  7. LORTAB [Concomitant]
  8. NEURONTIN [Concomitant]
  9. DARVOCET [Concomitant]
  10. WELLBUTRIN [Concomitant]
  11. VICODIN [Concomitant]
  12. AMBIEN [Concomitant]
  13. BUSPAR [Concomitant]

REACTIONS (1)
  - DEPENDENCE [None]
